FAERS Safety Report 14476680 (Version 12)
Quarter: 2019Q1

REPORT INFORMATION
  Report Type: Report from Study
  Country: CA (occurrence: CA)
  Receive Date: 20180201
  Receipt Date: 20190318
  Transmission Date: 20190417
  Serious: Yes (Hospitalization, Other)
  Sender: FDA-Public Use
  Company Number: CA-TAKEDA-2018TUS002404

PATIENT
  Age: 65 Year
  Sex: Female

DRUGS (14)
  1. VEDOLIZUMAB [Suspect]
     Active Substance: VEDOLIZUMAB
     Indication: CROHN^S DISEASE
     Dosage: 300 MILLIGRAM
     Route: 042
     Dates: start: 20171205
  2. VEDOLIZUMAB [Suspect]
     Active Substance: VEDOLIZUMAB
     Dosage: 300 MILLIGRAM
     Route: 042
  3. VEDOLIZUMAB [Suspect]
     Active Substance: VEDOLIZUMAB
     Dosage: 300 MILLIGRAM
     Route: 042
  4. VITAMIN B12 [Concomitant]
     Active Substance: CYANOCOBALAMIN
     Dosage: 1000 MILLIGRAM
  5. VEDOLIZUMAB [Suspect]
     Active Substance: VEDOLIZUMAB
     Dosage: 300 MILLIGRAM
     Route: 042
  6. PANTOPRAZOLE [Concomitant]
     Active Substance: PANTOPRAZOLE
     Dosage: 40 MILLIGRAM
  7. VITAMIN D                          /00107901/ [Concomitant]
     Active Substance: ERGOCALCIFEROL
     Dosage: 300 MILLIGRAM
  8. BENADRYL [Suspect]
     Active Substance: DIPHENHYDRAMINE HYDROCHLORIDE
     Indication: PREMEDICATION
     Dosage: UNK
     Route: 065
  9. VEDOLIZUMAB [Suspect]
     Active Substance: VEDOLIZUMAB
     Dosage: 300 MILLIGRAM
     Route: 042
  10. METOPROLOL. [Concomitant]
     Active Substance: METOPROLOL
     Dosage: 12.5 MILLIGRAM
  11. VEDOLIZUMAB [Suspect]
     Active Substance: VEDOLIZUMAB
     Dosage: 300 MILLIGRAM
     Route: 042
  12. VEDOLIZUMAB [Suspect]
     Active Substance: VEDOLIZUMAB
     Dosage: 300 MILLIGRAM
     Route: 042
     Dates: start: 20180807
  13. VEDOLIZUMAB [Suspect]
     Active Substance: VEDOLIZUMAB
     Dosage: 300 MILLIGRAM
     Route: 042
  14. SANDOZ RABEPRAZOLE [Concomitant]
     Active Substance: RABEPRAZOLE
     Indication: GASTRIC ULCER
     Dosage: 20 MG, UNK

REACTIONS (19)
  - Blood count abnormal [Unknown]
  - Lower respiratory tract infection [Recovered/Resolved]
  - Constipation [Unknown]
  - Off label use [Unknown]
  - Small intestinal obstruction [Recovered/Resolved]
  - Vomiting [Unknown]
  - Abdominal distension [Not Recovered/Not Resolved]
  - Abdominal pain [Recovering/Resolving]
  - Somnolence [Unknown]
  - Faecal calprotectin increased [Not Recovered/Not Resolved]
  - Fatigue [Unknown]
  - Rectal haemorrhage [Recovered/Resolved]
  - Defaecation urgency [Recovering/Resolving]
  - Anger [Not Recovered/Not Resolved]
  - Therapeutic reaction time decreased [Unknown]
  - Haemorrhage [Recovered/Resolved]
  - Stress [Not Recovered/Not Resolved]
  - Diarrhoea [Recovering/Resolving]
  - Sinusitis [Recovered/Resolved]

NARRATIVE: CASE EVENT DATE: 2018
